FAERS Safety Report 11518016 (Version 1)
Quarter: 2015Q3

REPORT INFORMATION
  Report Type: Spontaneous
  Country: US (occurrence: US)
  Receive Date: 20150917
  Receipt Date: 20150917
  Transmission Date: 20151125
  Serious: No
  Sender: FDA-Public Use
  Company Number: GXBR2015US001738

PATIENT
  Age: 38 Year
  Sex: Male
  Weight: 65.76 kg

DRUGS (3)
  1. MULTI-VIT [Concomitant]
     Active Substance: VITAMINS
     Indication: SUPPLEMENTATION THERAPY
     Dosage: UNK
  2. METHYLPREDNISOLONE TABLETS USP [Suspect]
     Active Substance: METHYLPREDNISOLONE
     Indication: NASAL POLYPS
     Dosage: 4 MG, UNK
     Route: 048
     Dates: start: 20150709, end: 20150715
  3. ADVAIR HFA [Concomitant]
     Active Substance: FLUTICASONE PROPIONATE\SALMETEROL XINAFOATE
     Indication: COUGH
     Dosage: UNK DF, PRN

REACTIONS (6)
  - Malaise [Recovered/Resolved]
  - Ocular hyperaemia [Recovering/Resolving]
  - Migraine [Recovered/Resolved]
  - Hypersensitivity [Recovered/Resolved]
  - Bacterial infection [Recovered/Resolved]
  - Contusion [Recovered/Resolved]

NARRATIVE: CASE EVENT DATE: 20150710
